FAERS Safety Report 7661585-5 (Version None)
Quarter: 2011Q3

REPORT INFORMATION
  Report Type: 
  Country: None (occurrence: None)
  Receive Date: 20110805
  Receipt Date: 20110727
  Transmission Date: 20111222
  Serious: Yes (Hospitalization)
  Sender: FDA-Public Use
  Company Number: US-CELGENEUS-163-21880-11073218

PATIENT
  Sex: Male
  Weight: 97.61 kg

DRUGS (12)
  1. BACTRIM [Concomitant]
     Route: 065
  2. FLUCONAZOLE [Concomitant]
     Route: 065
  3. PROTEOMIX [Concomitant]
     Route: 065
  4. PERCOCET [Concomitant]
     Route: 065
  5. CALCIUM ACETATE [Concomitant]
     Route: 065
  6. TOPAMAX [Concomitant]
     Route: 065
  7. DIAZEPAM [Concomitant]
     Route: 065
  8. VITAMIN B-12 [Concomitant]
     Route: 065
  9. VITAMIN B [Concomitant]
     Route: 065
  10. LEXAPRO [Concomitant]
     Route: 065
  11. REVLIMID [Suspect]
     Indication: MULTIPLE MYELOMA
     Dosage: 10 MILLIGRAM
     Route: 048
     Dates: start: 20101201, end: 20110715
  12. VITAMIN D [Concomitant]
     Route: 065

REACTIONS (1)
  - BACK DISORDER [None]
